FAERS Safety Report 4679173-1 (Version None)
Quarter: 2005Q2

REPORT INFORMATION
  Report Type: 
  Country: None (occurrence: None)
  Receive Date: 20050526
  Receipt Date: 20050211
  Transmission Date: 20051028
  Serious: Yes (Other)
  Sender: FDA-Public Use
  Company Number: WAES 0502USA01531

PATIENT
  Sex: Female

DRUGS (3)
  1. VYTORIN [Suspect]
     Indication: HYPERCHOLESTEROLAEMIA
     Dosage: 10/80 MG/DAILY/PO
     Route: 048
  2. ZOCOR [Suspect]
     Dosage: 80 MG/UNK/PO
     Route: 048
  3. ZETIA [Suspect]
     Dosage: 10 MG/UNK/PO
     Route: 048

REACTIONS (2)
  - OVERDOSE [None]
  - RHABDOMYOLYSIS [None]
